FAERS Safety Report 8041067-1 (Version None)
Quarter: 2012Q1

REPORT INFORMATION
  Report Type: 
  Country: None (occurrence: None)
  Receive Date: 20120109
  Receipt Date: 20111228
  Transmission Date: 20120608
  Serious: Yes (Other)
  Sender: FDA-Public Use
  Company Number: 2011MA017100

PATIENT
  Age: 29 Year
  Sex: Male

DRUGS (4)
  1. PHENOXYMETHYLPENICILLIN [Suspect]
     Indication: TONSILLITIS
     Dosage: 250 MG;QD
     Dates: start: 20110401
  2. IBUPROFEN [Suspect]
     Indication: TONSILLITIS
     Dosage: 2 DF;QD;PO
     Route: 048
     Dates: start: 20110401
  3. NAPROXEN [Suspect]
     Indication: MUSCLE TIGHTNESS
     Dosage: PO
     Route: 048
     Dates: start: 20101018
  4. NAPROXEN [Concomitant]

REACTIONS (13)
  - DYSPNOEA [None]
  - DISORIENTATION [None]
  - HYPOAESTHESIA ORAL [None]
  - FEELING ABNORMAL [None]
  - DISTURBANCE IN ATTENTION [None]
  - MUSCULAR WEAKNESS [None]
  - HEART RATE INCREASED [None]
  - NAUSEA [None]
  - SENSATION OF HEAVINESS [None]
  - GASTROOESOPHAGEAL REFLUX DISEASE [None]
  - ARTHROPATHY [None]
  - REACTION TO DRUG EXCIPIENTS [None]
  - HYPERSENSITIVITY [None]
